FAERS Safety Report 9519591 (Version 2)
Quarter: 2014Q2

REPORT INFORMATION
  Report Type: Spontaneous
  Country: US (occurrence: US)
  Receive Date: 20130912
  Receipt Date: 20140401
  Transmission Date: 20141212
  Serious: Yes (Hospitalization, Other)
  Sender: FDA-Public Use
  Company Number: US-TEVA-431147USA

PATIENT
  Age: 60 Year
  Sex: Female

DRUGS (1)
  1. COPAXONE [Suspect]
     Indication: MULTIPLE SCLEROSIS
     Dates: start: 20010101

REACTIONS (5)
  - Osteonecrosis [Unknown]
  - Osteoarthritis [Unknown]
  - Arthritis [Unknown]
  - Bursitis [Recovering/Resolving]
  - Bone disorder [Recovering/Resolving]
